FAERS Safety Report 7930862-2 (Version None)
Quarter: 2011Q4

REPORT INFORMATION
  Report Type: 
  Country: None (occurrence: None)
  Receive Date: 20111121
  Receipt Date: 20111114
  Transmission Date: 20120403
  Serious: Yes (Hospitalization)
  Sender: FDA-Public Use
  Company Number: US-ACTELION-A-US2011-55327

PATIENT

DRUGS (4)
  1. PLAVIX [Suspect]
     Dosage: UNK
     Dates: start: 20111101, end: 20111101
  2. OXYGEN [Concomitant]
  3. TRACLEER [Suspect]
     Indication: PULMONARY HYPERTENSION
     Dosage: UNK MG, UNK
     Route: 048
     Dates: start: 20110923, end: 20111101
  4. COUMADIN [Concomitant]

REACTIONS (14)
  - STENT PLACEMENT [None]
  - DIZZINESS [None]
  - ABDOMINAL PAIN [None]
  - DEHYDRATION [None]
  - HOT FLUSH [None]
  - DYSPNOEA [None]
  - URINE COLOUR ABNORMAL [None]
  - PRURITUS [None]
  - MALAISE [None]
  - CHEST PAIN [None]
  - DRUG INEFFECTIVE [None]
  - FATIGUE [None]
  - CONDITION AGGRAVATED [None]
  - RASH [None]
